FAERS Safety Report 21406204 (Version 1)
Quarter: 2022Q4

REPORT INFORMATION
  Report Type: Other
  Country: US (occurrence: None)
  Receive Date: 20221004
  Receipt Date: 20221004
  Transmission Date: 20230112
  Serious: Yes (Other)
  Sender: FDA-Public Use
  Company Number: US-ROCHE-3190233

PATIENT
  Sex: Male

DRUGS (7)
  1. OCREVUS [Suspect]
     Active Substance: OCRELIZUMAB
     Indication: Relapsing-remitting multiple sclerosis
     Dosage: ON DAY 1 AND DAY 15 THEN 600 MG EVERY 6 MONTHS
     Route: 042
  2. CARISOPRODOL [Concomitant]
     Active Substance: CARISOPRODOL
  3. AMPYRA [Concomitant]
     Active Substance: DALFAMPRIDINE
  4. DIAZEPAM [Concomitant]
     Active Substance: DIAZEPAM
     Route: 048
  5. HYDROCODONE [Concomitant]
     Active Substance: HYDROCODONE
  6. METFORMIN [Concomitant]
     Active Substance: METFORMIN HYDROCHLORIDE
  7. MODAFINIL [Concomitant]
     Active Substance: MODAFINIL

REACTIONS (24)
  - Nephrolithiasis [Unknown]
  - Cerebral ischaemia [Unknown]
  - Diabetes mellitus [Unknown]
  - Sciatica [Not Recovered/Not Resolved]
  - Fatigue [Unknown]
  - Muscular weakness [Unknown]
  - Back pain [Unknown]
  - Ischaemia [Unknown]
  - Gait disturbance [Unknown]
  - Neck pain [Unknown]
  - Intervertebral disc protrusion [Unknown]
  - Lumbosacral radiculopathy [Unknown]
  - Polyneuropathy [Unknown]
  - Malaise [Unknown]
  - Vitamin D decreased [Unknown]
  - JC polyomavirus test positive [Unknown]
  - Blood glucose increased [Unknown]
  - Haemoglobin decreased [Unknown]
  - Mean cell haemoglobin concentration decreased [Unknown]
  - Red cell distribution width increased [Unknown]
  - Blood immunoglobulin M decreased [Unknown]
  - Laboratory test abnormal [Unknown]
  - Nystagmus [Unknown]
  - Musculoskeletal pain [Unknown]
